FAERS Safety Report 4551422-X (Version None)
Quarter: 2005Q1

REPORT INFORMATION
  Report Type: 
  Country: None (occurrence: None)
  Receive Date: 20050104
  Receipt Date: 20041217
  Transmission Date: 20050727
  Serious: Yes (Hospitalization)
  Sender: FDA-Public Use
  Company Number: 2004-03982

PATIENT
  Age: 64 Year
  Sex: Male

DRUGS (1)
  1. IMMUCYST             (BCG - IT (CONNAUGHT)) [Suspect]
     Indication: BLADDER CANCER
     Route: 050
     Dates: start: 20041001

REACTIONS (5)
  - BONE SCAN ABNORMAL [None]
  - EYE PAIN [None]
  - LABORATORY TEST ABNORMAL [None]
  - POLYARTHRITIS [None]
  - REITER'S SYNDROME [None]
